FAERS Safety Report 6859493-2 (Version None)
Quarter: 2010Q3

REPORT INFORMATION
  Report Type: 
  Country: None (occurrence: None)
  Receive Date: 20100719
  Receipt Date: 20100719
  Transmission Date: 20110219
  Serious: Yes (Hospitalization)
  Sender: FDA-Public Use
  Company Number: None

PATIENT
  Age: 75 Year
  Sex: Female
  Weight: 78.9259 kg

DRUGS (2)
  1. LISINOPRIL [Suspect]
     Indication: HYPERTENSION
     Dosage: 20 MG 1 PILL PER DAY
     Dates: start: 20100415
  2. LUPIN LIMITED MUMBAI INDIA [Suspect]
     Indication: HYPERTENSION
     Dosage: 10-12.5 HCTZ 1 PILL PER DAY
     Dates: start: 20100528

REACTIONS (3)
  - DIARRHOEA [None]
  - MALAISE [None]
  - VOMITING [None]
